FAERS Safety Report 6590718-7 (Version None)
Quarter: 2010Q1

REPORT INFORMATION
  Report Type: 
  Country: None (occurrence: None)
  Receive Date: 20100219
  Receipt Date: 20100211
  Transmission Date: 20100710
  Serious: Yes (Other)
  Sender: FDA-Public Use
  Company Number: US-JNJFOC-20100112169

PATIENT
  Age: 56 Year
  Sex: Male
  Weight: 88.45 kg

DRUGS (11)
  1. TYLENOL ARTHRITIS PAIN ER [Suspect]
     Route: 048
  2. TYLENOL ARTHRITIS PAIN ER [Suspect]
     Indication: ARTHRITIS
     Dosage: 650-1300MG, ONCE DAILY, AS NEEDED
     Route: 048
  3. LOTREL [Concomitant]
     Indication: HYPERTENSION
     Dosage: 5/20MG ONCE DAILY
  4. LEVOTHYROXINE SODIUM [Concomitant]
     Indication: THYROID DISORDER
  5. SIMVASTATIN [Concomitant]
     Indication: BLOOD CHOLESTEROL INCREASED
  6. MELOXICAM [Concomitant]
     Indication: ARTHRITIS
  7. XALATAN [Concomitant]
     Indication: GLAUCOMA
  8. FISH OIL [Concomitant]
  9. MAGNESIUM [Concomitant]
  10. ASPIRIN [Concomitant]
     Indication: CARDIOVASCULAR EVENT PROPHYLAXIS
  11. CHONDROITIN SULFATE W/GLUCOSAMINE [Concomitant]

REACTIONS (5)
  - ABDOMINAL PAIN UPPER [None]
  - HAEMORRHAGE [None]
  - NAUSEA [None]
  - PRODUCT QUALITY ISSUE [None]
  - VOMITING [None]
